FAERS Safety Report 14596515 (Version 2)
Quarter: 2018Q2

REPORT INFORMATION
  Report Type: Spontaneous
  Country: US (occurrence: US)
  Receive Date: 20180304
  Receipt Date: 20180410
  Transmission Date: 20180711
  Serious: No
  Sender: FDA-Public Use
  Company Number: PHEH2018US008667

PATIENT
  Sex: Male

DRUGS (2)
  1. LENVATINIB [Suspect]
     Active Substance: LENVATINIB
     Indication: RENAL CANCER
     Dosage: 8 MG, QD
     Route: 048
     Dates: start: 20171006
  2. AFINITOR [Suspect]
     Active Substance: EVEROLIMUS
     Indication: PRODUCT USED FOR UNKNOWN INDICATION
     Route: 065

REACTIONS (11)
  - Secretion discharge [Unknown]
  - Blood creatinine increased [Unknown]
  - Sleep disorder [Unknown]
  - Acne [Unknown]
  - Cough [Unknown]
  - Fatigue [Unknown]
  - Hypertension [Unknown]
  - Dental caries [Unknown]
  - Epistaxis [Unknown]
  - Blood thyroid stimulating hormone increased [Unknown]
  - Diarrhoea [Unknown]
